FAERS Safety Report 12759871 (Version 2)
Quarter: 2016Q4

REPORT INFORMATION
  Report Type: Spontaneous
  Country: DE (occurrence: DE)
  Receive Date: 20160919
  Receipt Date: 20161017
  Transmission Date: 20170207
  Serious: Yes (Life-Threatening, Hospitalization)
  Sender: FDA-Public Use
  Company Number: DE-JNJFOC-20160915627

PATIENT
  Age: 55 Year
  Sex: Female
  Weight: 65 kg

DRUGS (3)
  1. SEROQUEL [Suspect]
     Active Substance: QUETIAPINE FUMARATE
     Indication: SCHIZOPHRENIA
     Dosage: 50 MG ONE TIME DUE TO NO COMPLIANCE
     Route: 065
     Dates: start: 20160824, end: 20160824
  2. SEMPERA [Suspect]
     Active Substance: ITRACONAZOLE
     Indication: PRODUCT USED FOR UNKNOWN INDICATION
     Route: 048
     Dates: start: 201512, end: 20160824
  3. SEROQUEL [Suspect]
     Active Substance: QUETIAPINE FUMARATE
     Indication: FEELING ABNORMAL
     Dosage: 50 MG ONE TIME DUE TO NO COMPLIANCE
     Route: 065
     Dates: start: 20160824, end: 20160824

REACTIONS (6)
  - Disturbance in attention [Recovered/Resolved]
  - Mental impairment [Recovered/Resolved]
  - Drug abuse [Recovered/Resolved]
  - Somnolence [Recovered/Resolved]
  - Syncope [Recovered/Resolved]
  - Dysarthria [Recovered/Resolved]

NARRATIVE: CASE EVENT DATE: 20151102
